FAERS Safety Report 14756969 (Version 1)
Quarter: 2018Q2

REPORT INFORMATION
  Report Type: Spontaneous
  Country: US (occurrence: US)
  Receive Date: 20180408
  Receipt Date: 20180408
  Transmission Date: 20180711
  Serious: Yes (Other)
  Sender: FDA-Public Use
  Company Number: None

PATIENT
  Age: 88 Year
  Sex: Male
  Weight: 64.41 kg

DRUGS (15)
  1. PREDNISONE. [Concomitant]
     Active Substance: PREDNISONE
  2. OMEPRAZOLE. [Concomitant]
     Active Substance: OMEPRAZOLE
  3. AREDS 2 [Concomitant]
     Active Substance: MINERALS\VITAMINS
  4. COMBIVENT RESPIMAT [Concomitant]
     Active Substance: ALBUTEROL SULFATE\IPRATROPIUM BROMIDE
  5. VITAMIN D [Concomitant]
     Active Substance: CHOLECALCIFEROL
  6. CALCIUM [Concomitant]
     Active Substance: CALCIUM
  7. MULTI VITAMIN [Concomitant]
     Active Substance: VITAMINS
  8. POTASSIUM CHLORIDE. [Concomitant]
     Active Substance: POTASSIUM CHLORIDE
  9. DILTIAZEM. [Concomitant]
     Active Substance: DILTIAZEM
  10. DORZOLAMIDE [Concomitant]
     Active Substance: DORZOLAMIDE
  11. QVAR REDIHALER [Suspect]
     Active Substance: BECLOMETHASONE DIPROPIONATE
     Indication: ASTHMA
     Dosage: ?          QUANTITY:120 DF DOSAGE FORM;?
     Route: 055
     Dates: start: 20180408, end: 20180408
  12. ALIGN PROBIOTIC [Concomitant]
  13. TRAMADOL. [Concomitant]
     Active Substance: TRAMADOL
  14. FUROSEMIDE. [Concomitant]
     Active Substance: FUROSEMIDE
  15. IMDUR [Concomitant]
     Active Substance: ISOSORBIDE MONONITRATE

REACTIONS (1)
  - Dysphonia [None]

NARRATIVE: CASE EVENT DATE: 20180408
